FAERS Safety Report 6210033-0 (Version None)
Quarter: 2009Q2

REPORT INFORMATION
  Report Type: 
  Country: None (occurrence: None)
  Receive Date: 20090529
  Receipt Date: 20090529
  Transmission Date: 20091009
  Serious: No
  Sender: FDA-Public Use
  Company Number: None

PATIENT
  Age: 78 Year
  Sex: Male

DRUGS (1)
  1. HEPARIN [Suspect]
     Indication: HAEMODIALYSIS
     Dosage: 26000 UNITS OTHER OTHER
     Route: 050
     Dates: end: 20090509

REACTIONS (2)
  - HAEMODIALYSIS [None]
  - THROMBOCYTOPENIA [None]
